FAERS Safety Report 10037064 (Version 2)
Quarter: 2014Q2

REPORT INFORMATION
  Report Type: Spontaneous
  Country: CZ (occurrence: CZ)
  Receive Date: 20140326
  Receipt Date: 20140422
  Transmission Date: 20141212
  Serious: Yes (Hospitalization)
  Sender: FDA-Public Use
  Company Number: CZ-BRISTOL-MYERS SQUIBB COMPANY-20542833

PATIENT
  Sex: Female

DRUGS (1)
  1. YERVOY [Suspect]
     Indication: METASTATIC MALIGNANT MELANOMA
     Dosage: SECOND DOSE :JAN14
     Dates: start: 2013

REACTIONS (4)
  - Visual impairment [Unknown]
  - Dizziness [Unknown]
  - Nystagmus [Unknown]
  - Loss of consciousness [Unknown]
